FAERS Safety Report 6287766-3 (Version None)
Quarter: 2009Q3

REPORT INFORMATION
  Report Type: 
  Country: None (occurrence: None)
  Receive Date: 20090727
  Receipt Date: 20090727
  Transmission Date: 20100115
  Serious: No
  Sender: FDA-Public Use
  Company Number: None

PATIENT
  Age: 49 Year
  Sex: Female
  Weight: 72.5755 kg

DRUGS (4)
  1. ZIACAM NASAL SPRAY -WHITE BOTTLE [Suspect]
     Indication: HYPERSENSITIVITY
     Dosage: 1 SPRAY PER NOSTRIL 1 TIME ONLY
     Route: 045
     Dates: start: 20090203, end: 20090203
  2. ZIACAM NASAL SPRAY -WHITE BOTTLE [Suspect]
     Indication: NASAL CONGESTION
     Dosage: 1 SPRAY PER NOSTRIL 1 TIME ONLY
     Route: 045
     Dates: start: 20090203, end: 20090203
  3. ZIACAM NASAL SPRAY -WHITE BOTTLE [Suspect]
     Indication: NASOPHARYNGITIS
     Dosage: 1 SPRAY PER NOSTRIL 1 TIME ONLY
     Route: 045
     Dates: start: 20090203, end: 20090203
  4. ZIACAM NASAL SPRAY [Concomitant]

REACTIONS (4)
  - ANOSMIA [None]
  - DYSGEUSIA [None]
  - LACRIMATION INCREASED [None]
  - NASAL DISCOMFORT [None]
